FAERS Safety Report 19847156 (Version 1)
Quarter: 2021Q3

REPORT INFORMATION
  Report Type: Spontaneous
  Country: US (occurrence: US)
  Receive Date: 20210917
  Receipt Date: 20210917
  Transmission Date: 20211014
  Serious: No
  Sender: FDA-Public Use
  Company Number: US-009507513-2109USA002530

PATIENT
  Age: 68 Year
  Sex: Female
  Weight: 72.57 kg

DRUGS (3)
  1. TRUSOPT [Suspect]
     Active Substance: DORZOLAMIDE HYDROCHLORIDE
     Indication: BLOOD PRESSURE ABNORMAL
     Dosage: UNK
  2. PFIZER?BIONTECH COVID?19 VACCINE [Suspect]
     Active Substance: TOZINAMERAN
     Indication: PROPHYLAXIS
     Dosage: FIRST DOSE
     Dates: start: 20210211
  3. PFIZER?BIONTECH COVID?19 VACCINE [Suspect]
     Active Substance: TOZINAMERAN
     Dosage: SECOND DOSE
     Dates: start: 20210310

REACTIONS (10)
  - Blood potassium decreased [Unknown]
  - Heart rate increased [Unknown]
  - Toxicity to various agents [Unknown]
  - Drug interaction [Unknown]
  - Illness [Recovered/Resolved]
  - Illness [Recovered/Resolved]
  - Product use in unapproved indication [Unknown]
  - Inflammation [Unknown]
  - Asthenia [Recovering/Resolving]
  - Blood pressure increased [Unknown]

NARRATIVE: CASE EVENT DATE: 2021
